FAERS Safety Report 13537261 (Version 4)
Quarter: 2018Q2

REPORT INFORMATION
  Report Type: Spontaneous
  Country: GB (occurrence: GB)
  Receive Date: 20170511
  Receipt Date: 20180409
  Transmission Date: 20180711
  Serious: Yes (Hospitalization, Other)
  Sender: FDA-Public Use
  Company Number: GB-PFIZER INC-2017041126

PATIENT
  Age: 63 Year
  Sex: Male

DRUGS (1)
  1. IBUPROFEN. [Suspect]
     Active Substance: IBUPROFEN
     Indication: OSTEOARTHRITIS
     Dosage: 400 MG, 3X/DAY

REACTIONS (2)
  - Intestinal diaphragm disease [Unknown]
  - Small intestinal obstruction [Unknown]
